FAERS Safety Report 8410514-5 (Version None)
Quarter: 2012Q2

REPORT INFORMATION
  Report Type: 
  Country: None (occurrence: None)
  Receive Date: 20120529
  Receipt Date: 20020812
  Transmission Date: 20120825
  Serious: Yes (Hospitalization)
  Sender: FDA-Public Use
  Company Number: 02100-USA-02-0205

PATIENT
  Age: 83 Year
  Sex: Female

DRUGS (11)
  1. SYNTHROID [Concomitant]
  2. ASPIRIN [Concomitant]
  3. IMDUR [Concomitant]
  4. CALAN [Concomitant]
  5. LANOXIN [Concomitant]
  6. BUMEX [Concomitant]
  7. NEPHROCAPS (FOLIC ACID, VITAMINS NOS) [Concomitant]
  8. ALLOPURINOL [Concomitant]
  9. PLETAL [Suspect]
     Dosage: 50 MG, BID, ORAL
     Route: 048
  10. LOPRESSOR [Concomitant]
  11. CATAPRES-TTS-1 [Concomitant]

REACTIONS (6)
  - PLEURAL EFFUSION [None]
  - SINUS TACHYCARDIA [None]
  - HYPERTENSION [None]
  - ABDOMINAL DISCOMFORT [None]
  - NAUSEA [None]
  - VOMITING [None]
